FAERS Safety Report 14377641 (Version 1)
Quarter: 2018Q1

REPORT INFORMATION
  Report Type: Spontaneous
  Country: US (occurrence: US)
  Receive Date: 20180111
  Receipt Date: 20180111
  Transmission Date: 20180509
  Serious: Yes (Hospitalization, Other)
  Sender: FDA-Public Use
  Company Number: US-PFIZER INC-2018014022

PATIENT
  Age: 10 Year
  Sex: Female
  Weight: 32.66 kg

DRUGS (1)
  1. QUILLIVANT XR [Suspect]
     Active Substance: METHYLPHENIDATE HYDROCHLORIDE
     Indication: ATTENTION DEFICIT/HYPERACTIVITY DISORDER
     Dosage: 4-6ML ONCE A DAY
     Route: 048
     Dates: start: 2014

REACTIONS (5)
  - Cardiac contusion [Unknown]
  - Concussion [Recovering/Resolving]
  - Pulmonary contusion [Unknown]
  - Dural tear [Unknown]
  - Accident [Unknown]

NARRATIVE: CASE EVENT DATE: 201711
